FAERS Safety Report 18450212 (Version 2)
Quarter: 2020Q4

REPORT INFORMATION
  Report Type: Spontaneous
  Country: US (occurrence: US)
  Receive Date: 20201030
  Receipt Date: 20201118
  Transmission Date: 20210114
  Serious: Yes (Death, Life-Threatening, Hospitalization, Other)
  Sender: FDA-Public Use
  Company Number: US-ASTRAZENECA-2020SE99768

PATIENT
  Age: 15205 Day
  Sex: Male
  Weight: 217.9 kg

DRUGS (19)
  1. LORAZEPAM. [Concomitant]
     Active Substance: LORAZEPAM
     Dates: start: 20200423, end: 20200429
  2. ZOSYN [Concomitant]
     Active Substance: PIPERACILLIN SODIUM\TAZOBACTAM SODIUM
     Dates: start: 20200415, end: 20200502
  3. FUROSEMIDE. [Concomitant]
     Active Substance: FUROSEMIDE
     Dates: start: 20200426, end: 20200430
  4. METOPROLOL. [Suspect]
     Active Substance: METOPROLOL
     Route: 065
  5. TOLVAPTAN [Concomitant]
     Active Substance: TOLVAPTAN
     Dates: start: 20200420, end: 20200421
  6. PROTONIX [Concomitant]
     Active Substance: PANTOPRAZOLE SODIUM
     Dates: start: 20200421, end: 20200502
  7. LOVENOX [Concomitant]
     Active Substance: ENOXAPARIN SODIUM
     Dates: start: 20200415, end: 20200417
  8. METRONIDAZOLE. [Concomitant]
     Active Substance: METRONIDAZOLE
     Dates: start: 20200422, end: 20200430
  9. ZYVOX [Concomitant]
     Active Substance: LINEZOLID
     Dates: start: 20200414, end: 20200428
  10. LEVAQUIN [Concomitant]
     Active Substance: LEVOFLOXACIN
     Dates: start: 20200414, end: 20200415
  11. FLORASTOR [Concomitant]
     Active Substance: SACCHAROMYCES CEREVISIAE
     Dates: start: 20200414, end: 20200421
  12. PHYTONADIONE. [Concomitant]
     Active Substance: PHYTONADIONE
     Dates: start: 20200418
  13. FAMOTIDINE. [Concomitant]
     Active Substance: FAMOTIDINE
     Dates: start: 20200414, end: 20200417
  14. LOKELMA [Suspect]
     Active Substance: SODIUM ZIRCONIUM CYCLOSILICATE
     Indication: HYPERKALAEMIA
     Dosage: 10.0G UNKNOWN
     Route: 048
     Dates: start: 20200417, end: 20200421
  15. METOPROLOL. [Concomitant]
     Active Substance: METOPROLOL
     Dates: start: 20200416, end: 20200421
  16. NEPHROCAPS [Concomitant]
     Active Substance: ASCORBIC ACID\BIOTIN\CYANOCOBALAMIN\FOLIC ACID\NIACIN\PANTOTHENIC ACID\PYRIDOXINE\RIBOFLAVIN\THIAMINE
     Dates: start: 20200414, end: 20200421
  17. TORSEMIDE. [Concomitant]
     Active Substance: TORSEMIDE
     Dates: start: 20200418, end: 20200419
  18. SUCRALFATE. [Concomitant]
     Active Substance: SUCRALFATE
     Dates: start: 20200415, end: 20200421
  19. SODIM BICARBONATE [Concomitant]
     Dates: start: 20200418, end: 20200423

REACTIONS (3)
  - Sepsis [Fatal]
  - Crystal deposit intestine [Recovered/Resolved]
  - Gastric perforation [Fatal]

NARRATIVE: CASE EVENT DATE: 20200422
